FAERS Safety Report 7370418-6 (Version None)
Quarter: 2011Q1

REPORT INFORMATION
  Report Type: 
  Country: None (occurrence: None)
  Receive Date: 20110323
  Receipt Date: 20110309
  Transmission Date: 20110831
  Serious: Yes (Other)
  Sender: FDA-Public Use
  Company Number: US-MYLANLABS-2011S1005277

PATIENT
  Age: 82 Year
  Sex: Male

DRUGS (1)
  1. NITROFURANTOIN [Suspect]
     Route: 065

REACTIONS (1)
  - DRUG ERUPTION [None]
